FAERS Safety Report 9538515 (Version 1)
Quarter: 2013Q3

REPORT INFORMATION
  Report Type: Report from Study
  Country: CA (occurrence: CA)
  Receive Date: 20130920
  Receipt Date: 20130920
  Transmission Date: 20140515
  Serious: Yes (Hospitalization)
  Sender: FDA-Public Use
  Company Number: CA-JNJFOC-20130908230

PATIENT
  Age: 50 Year
  Sex: Female
  Weight: 94.4 kg

DRUGS (7)
  1. REMICADE [Suspect]
     Indication: CROHN^S DISEASE
     Route: 042
     Dates: start: 20100712
  2. DEMEROL [Concomitant]
     Route: 065
  3. IRON [Concomitant]
     Route: 065
  4. MAGNESIUM [Concomitant]
     Route: 065
  5. VITAMIN D [Concomitant]
     Route: 065
  6. PROGESTERONE [Concomitant]
     Route: 065
  7. TYLENOL [Concomitant]
     Route: 065

REACTIONS (1)
  - Lung neoplasm [Recovered/Resolved]
